FAERS Safety Report 9000995 (Version 2)
Quarter: 2013Q4

REPORT INFORMATION
  Report Type: Spontaneous
  Country: GB (occurrence: None)
  Receive Date: 20121226
  Receipt Date: 20131008
  Transmission Date: 20140711
  Serious: Yes (Hospitalization)
  Sender: FDA-Public Use
  Company Number: AUR-APL-2012-05429

PATIENT
  Age: 84 Year
  Sex: Female

DRUGS (6)
  1. AMLODIPINE [Suspect]
     Indication: BLOOD PRESSURE
  2. LISINOPRIL (LISINOPRIL) [Suspect]
     Indication: BLOOD PRESSURE
  3. LISINOPRIL (LISINOPRIL) [Suspect]
  4. BISOPROLOL [Suspect]
     Indication: ANGINA PECTORIS
  5. FOLIC ACID (FOLIC ACID) [Concomitant]
  6. GALFER SYRUP [Concomitant]

REACTIONS (5)
  - Wrong technique in drug usage process [None]
  - Hypertension [None]
  - Drug ineffective [None]
  - Muscle spasms [None]
  - Muscle spasms [None]
